FAERS Safety Report 7148281-8 (Version None)
Quarter: 2010Q4

REPORT INFORMATION
  Report Type: 
  Country: None (occurrence: None)
  Receive Date: 20101209
  Receipt Date: 20101129
  Transmission Date: 20110411
  Serious: Yes (Hospitalization)
  Sender: FDA-Public Use
  Company Number: US-NAPPMUNDI-USA-2010-0056330

PATIENT
  Age: 41 Year
  Sex: Female
  Weight: 51.02 kg

DRUGS (23)
  1. MS CONTIN [Suspect]
     Indication: ABDOMINAL PAIN
     Dosage: UNK
     Dates: start: 20100901
  2. MORPHINE SULFATE [Suspect]
     Indication: ABDOMINAL PAIN
     Dosage: UNK
     Dates: start: 20100901
  3. AXITINIB [Suspect]
     Indication: COLORECTAL CANCER METASTATIC
     Dosage: 10 MG, SEE TEXT
     Route: 048
     Dates: start: 20101023, end: 20101029
  4. IRINOTECAN HCL [Suspect]
     Indication: COLORECTAL CANCER METASTATIC
     Dosage: 232 MG, BIW
     Route: 042
     Dates: start: 20101108
  5. ADRUCIL [Suspect]
     Indication: COLORECTAL CANCER METASTATIC
     Dosage: 600 MG, BIW
     Route: 040
     Dates: start: 20101108
  6. ADRUCIL [Suspect]
     Dosage: 3600 MG, BIW
     Route: 041
     Dates: start: 20101108
  7. WELLCOVORIN [Suspect]
     Indication: COLORECTAL CANCER METASTATIC
     Dosage: 600 MG, BIW
     Route: 042
     Dates: start: 20101108
  8. ZOFRAN [Suspect]
     Indication: PRODUCT USED FOR UNKNOWN INDICATION
     Dosage: UNK
     Dates: start: 20101029
  9. DILAUDID-HP [Concomitant]
     Indication: PRODUCT USED FOR UNKNOWN INDICATION
     Dosage: UNK
     Dates: start: 20101029, end: 20101029
  10. SENOKOT                            /00142205/ [Concomitant]
     Indication: CONSTIPATION
     Dosage: UNK
     Dates: start: 20100901
  11. ATIVAN [Concomitant]
     Indication: INSOMNIA
     Dosage: UNK
     Dates: start: 20080101
  12. ATIVAN [Concomitant]
     Indication: ANXIETY
  13. MIRALAX [Concomitant]
     Indication: CONSTIPATION
     Dosage: UNK
     Dates: start: 20101029
  14. SYNTHROID [Concomitant]
     Indication: HYPOTHYROIDISM
     Dosage: UNK
     Dates: start: 20101101
  15. ATROPINE [Concomitant]
     Indication: PRODUCT USED FOR UNKNOWN INDICATION
     Dosage: UNK
     Dates: start: 20101108
  16. DECADRON [Concomitant]
     Indication: PRODUCT USED FOR UNKNOWN INDICATION
     Dosage: UNK
     Dates: start: 20101108
  17. PALONOSETRON [Concomitant]
     Indication: PRODUCT USED FOR UNKNOWN INDICATION
     Dosage: UNK
     Dates: start: 20101108
  18. COMPAZINE [Concomitant]
     Indication: NAUSEA
     Dosage: UNK
     Dates: start: 20101109
  19. SCOPOLAMINE [Concomitant]
     Indication: PRODUCT USED FOR UNKNOWN INDICATION
     Dosage: UNK
     Dates: start: 20101029, end: 20101101
  20. CEFTRIAXONE [Concomitant]
     Indication: PRODUCT USED FOR UNKNOWN INDICATION
     Dosage: UNK
     Dates: start: 20101029, end: 20101031
  21. BISACODYL [Concomitant]
     Indication: PRODUCT USED FOR UNKNOWN INDICATION
     Dosage: UNK
     Dates: start: 20101029, end: 20101101
  22. ALBUMIN (HUMAN) [Concomitant]
     Indication: PRODUCT USED FOR UNKNOWN INDICATION
     Dosage: UNK
     Dates: start: 20101031, end: 20101031
  23. NYSTATIN [Concomitant]
     Indication: ORAL CANDIDIASIS
     Dosage: UNK
     Dates: start: 20101108

REACTIONS (14)
  - ABDOMINAL PAIN [None]
  - ANXIETY [None]
  - CONSTIPATION [None]
  - DYSPNOEA [None]
  - FATIGUE [None]
  - GENERALISED OEDEMA [None]
  - HYPOTHYROIDISM [None]
  - INSOMNIA [None]
  - NAUSEA [None]
  - ORAL CANDIDIASIS [None]
  - PYREXIA [None]
  - SINUS TACHYCARDIA [None]
  - VOMITING [None]
  - WEIGHT DECREASED [None]
